FAERS Safety Report 25055570 (Version 5)
Quarter: 2025Q4

REPORT INFORMATION
  Report Type: Spontaneous
  Country: JP (occurrence: JP)
  Receive Date: 20250308
  Receipt Date: 20251212
  Transmission Date: 20260118
  Serious: Yes (Other)
  Sender: MERCK SHARP & DOHME LLC
  Company Number: JP-009507513-2260699

PATIENT
  Age: 81 Year
  Sex: Male

DRUGS (1)
  1. KEYTRUDA [Suspect]
     Active Substance: PEMBROLIZUMAB
     Indication: Oesophageal squamous cell carcinoma stage IV
     Route: 041
     Dates: start: 20221004

REACTIONS (6)
  - Renal impairment [Unknown]
  - Therapy partial responder [Unknown]
  - Neutrophil count decreased [Unknown]
  - Pruritus [Unknown]
  - Malaise [Unknown]
  - Decreased appetite [Unknown]
